FAERS Safety Report 7212889-1 (Version None)
Quarter: 2011Q1

REPORT INFORMATION
  Report Type: 
  Country: None (occurrence: None)
  Receive Date: 20110106
  Receipt Date: 20110103
  Transmission Date: 20110831
  Serious: Yes (Death)
  Sender: FDA-Public Use
  Company Number: PHHY2011GR00477

PATIENT
  Sex: Female

DRUGS (1)
  1. AFINITOR [Suspect]
     Indication: THYROID CANCER
     Dosage: 5 MG, BID

REACTIONS (1)
  - CEREBROVASCULAR ACCIDENT [None]
